FAERS Safety Report 19285054 (Version 1)
Quarter: 2021Q2

REPORT INFORMATION
  Report Type: Spontaneous
  Country: US (occurrence: US)
  Receive Date: 20210521
  Receipt Date: 20210521
  Transmission Date: 20210717
  Serious: Yes (Death, Other)
  Sender: FDA-Public Use
  Company Number: US-BAYER-2021-143738

PATIENT
  Age: 39 Year
  Sex: Female

DRUGS (2)
  1. DEXTROSE. [Concomitant]
     Active Substance: DEXTROSE
  2. ACETYLSALICYLIC ACID [Suspect]
     Active Substance: ASPIRIN
     Dosage: 1 DF, QD

REACTIONS (2)
  - Haemoperitoneum [Fatal]
  - Internal haemorrhage [Fatal]
